FAERS Safety Report 10153288 (Version 1)
Quarter: 2014Q2

REPORT INFORMATION
  Report Type: Spontaneous
  Country: US (occurrence: US)
  Receive Date: 20140505
  Receipt Date: 20140505
  Transmission Date: 20141212
  Serious: Yes (Other)
  Sender: FDA-Public Use
  Company Number: US-MYLANLABS-2014S1010055

PATIENT
  Sex: Male

DRUGS (1)
  1. LEVOTHYROXINE SODIUM [Suspect]
     Dates: start: 2013, end: 2013

REACTIONS (3)
  - Hypersensitivity [Recovered/Resolved]
  - Reaction to drug excipients [Recovered/Resolved]
  - Swollen tongue [Recovered/Resolved]
